FAERS Safety Report 21022931 (Version 1)
Quarter: 2022Q2

REPORT INFORMATION
  Report Type: Report from Study
  Country: ES (occurrence: ES)
  Receive Date: 20220629
  Receipt Date: 20220629
  Transmission Date: 20220721
  Serious: Yes (Hospitalization)
  Sender: FDA-Public Use
  Company Number: None

PATIENT
  Age: 13 Year
  Sex: Female

DRUGS (2)
  1. IBUPROFEN [Suspect]
     Active Substance: IBUPROFEN
     Indication: Intentional overdose
     Dosage: 3 ENVELOPES,IBUPROFEN (1769A),DURATION 1 DAYS
     Route: 048
     Dates: start: 20210201, end: 20210201
  2. ACETAMINOPHEN [Suspect]
     Active Substance: ACETAMINOPHEN
     Indication: Intentional overdose
     Dosage: 23.4 GR,PARACETAMOL (12A),DURATION 1 DAYS
     Route: 048
     Dates: start: 20210201, end: 20210201

REACTIONS (3)
  - Depressed mood [Recovered/Resolved]
  - Nausea [Recovered/Resolved]
  - Vomiting [Recovered/Resolved]

NARRATIVE: CASE EVENT DATE: 20210201
